FAERS Safety Report 4702457-5 (Version None)
Quarter: 2005Q2

REPORT INFORMATION
  Report Type: 
  Country: None (occurrence: None)
  Receive Date: 20050629
  Receipt Date: 19961002
  Transmission Date: 20051028
  Serious: Yes (Death, Hospitalization)
  Sender: FDA-Public Use
  Company Number: 96F--10755

PATIENT
  Age: 69 Year
  Sex: Male

DRUGS (3)
  1. VOLTAREN [Suspect]
     Dosage: 100 MG, QD
     Route: 048
     Dates: start: 19960703, end: 19960705
  2. COLCHIMAX [Suspect]
     Dosage: 1 MG, QD2SDO
     Route: 048
     Dates: start: 19960703, end: 19960705
  3. FRAXIPARINE [Concomitant]
     Dosage: 0.3 ML/DAY
     Route: 058
     Dates: start: 19960701

REACTIONS (20)
  - ALANINE AMINOTRANSFERASE INCREASED [None]
  - ASPARTATE AMINOTRANSFERASE INCREASED [None]
  - BILIARY DILATATION [None]
  - BLOOD ALKALINE PHOSPHATASE INCREASED [None]
  - CARDIAC FAILURE CONGESTIVE [None]
  - CHOLESTASIS [None]
  - CONCOMITANT DISEASE PROGRESSION [None]
  - CONDITION AGGRAVATED [None]
  - CYTOLYTIC HEPATITIS [None]
  - GAMMA-GLUTAMYLTRANSFERASE INCREASED [None]
  - HEPATIC STEATOSIS [None]
  - HEPATITIS [None]
  - HEPATOMEGALY [None]
  - HYPERTHERMIA [None]
  - LYMPHADENOPATHY MEDIASTINAL [None]
  - MYCOBACTERIA BLOOD TEST POSITIVE [None]
  - PNEUMONIA PNEUMOCOCCAL [None]
  - RENAL INFARCT [None]
  - RESPIRATORY DISORDER [None]
  - SEPTIC SHOCK [None]
